FAERS Safety Report 14178294 (Version 1)
Quarter: 2017Q4

REPORT INFORMATION
  Report Type: Spontaneous
  Country: DE (occurrence: DE)
  Receive Date: 20171110
  Receipt Date: 20171110
  Transmission Date: 20180321
  Serious: Yes (Other)
  Sender: FDA-Public Use
  Company Number: DE-ROCHE-2020164

PATIENT
  Sex: Female

DRUGS (2)
  1. HERCEPTIN [Suspect]
     Active Substance: TRASTUZUMAB
     Indication: BREAST CANCER METASTATIC
     Dosage: TOGETHER WITH CHEMOTHERAPY, ?MONOTHERAPY,?MONOTHERAPY ONCE IN 3 WEEKS
     Route: 065
     Dates: start: 1999
  2. HERCEPTIN [Suspect]
     Active Substance: TRASTUZUMAB
     Dosage: TOGETHER WITH CHEMOTHERAPY
     Route: 065
     Dates: start: 2012

REACTIONS (3)
  - Cardiac failure [Unknown]
  - Pneumonitis [Unknown]
  - Radiation fibrosis [Unknown]
